FAERS Safety Report 7605066-3 (Version None)
Quarter: 2011Q3

REPORT INFORMATION
  Report Type: 
  Country: None (occurrence: None)
  Receive Date: 20110713
  Receipt Date: 20081205
  Transmission Date: 20111222
  Serious: Yes (Death, Hospitalization, Other)
  Sender: FDA-Public Use
  Company Number: US-BAYER-200839702NA

PATIENT
  Age: 72 Year
  Sex: Male
  Weight: 98 kg

DRUGS (24)
  1. VERPAMIL HCL [Concomitant]
     Dosage: UNK
     Route: 048
     Dates: end: 20050913
  2. LEVOTHYROXINE SODIUM [Concomitant]
     Dosage: 50 MG/24HR, UNK
     Route: 048
  3. MILRINONE [Concomitant]
     Dosage: UNK
     Route: 042
     Dates: start: 20050916
  4. TRASYLOL [Suspect]
     Dosage: 100 ML LOADING DOSE
     Route: 042
     Dates: start: 20050916, end: 20050916
  5. DIOVAN [Concomitant]
     Dosage: 80 MG, UNK
     Route: 048
  6. MIDAZOLAM HCL [Concomitant]
     Dosage: UNK
     Route: 042
     Dates: start: 20050916, end: 20050916
  7. PRIMACOR [Concomitant]
     Dosage: UNK
     Route: 042
     Dates: start: 20050916
  8. ETOMIDATE [Concomitant]
     Dosage: UNK
     Route: 042
     Dates: start: 20050916, end: 20050916
  9. LIPITOR [Concomitant]
     Dosage: 80 MG, UNK
     Route: 048
     Dates: start: 20050912
  10. PAVULON [Concomitant]
     Dosage: UNK
     Route: 042
     Dates: start: 20050916, end: 20050916
  11. UNIVASC [Concomitant]
     Dosage: 15 MG/24HR, UNK
     Route: 048
     Dates: end: 20050913
  12. VISIPAQUE [Concomitant]
     Indication: CATHETERISATION CARDIAC
     Dosage: 90 ML, UNK
     Dates: start: 20050915
  13. LOPRESSOR [Concomitant]
     Dosage: 100 MG, BID
     Route: 048
  14. ASPIRIN [Concomitant]
     Dosage: 325 MG, UNK
     Route: 048
     Dates: start: 20050912
  15. HEPARIN [Concomitant]
     Dosage: UNK
     Route: 042
     Dates: start: 20050912
  16. AMIODARONE HCL [Concomitant]
     Dosage: UNK
     Route: 042
     Dates: start: 20050916
  17. CEFAZOLIN [Concomitant]
     Dosage: UNK
     Route: 042
     Dates: start: 20050916
  18. LOVENOX [Concomitant]
     Dosage: 100 TWICE DAILY
     Route: 058
     Dates: start: 20050912
  19. PHENYLEPHRINE HCL [Concomitant]
     Dosage: UNK
     Route: 042
     Dates: start: 20050916
  20. TRASYLOL [Suspect]
     Indication: CORONARY ARTERY BYPASS
     Dosage: 100 ML, CARDIOPULMONARY BYPASS PRIME
     Route: 042
     Dates: start: 20050916, end: 20050916
  21. EPINEPHRINE [Concomitant]
     Dosage: UNK
     Route: 042
     Dates: start: 20050916, end: 20050916
  22. LIDOCAINE [Concomitant]
     Dosage: UNK
     Route: 042
     Dates: start: 20050916
  23. NOREPINEPHRINE BITARTRATE [Concomitant]
     Dosage: UNK
     Route: 042
     Dates: start: 20050916
  24. COLCHICINE [Concomitant]
     Dosage: 0.6 MG/24HR, UNK
     Route: 048

REACTIONS (14)
  - ANXIETY [None]
  - FEAR [None]
  - DEATH [None]
  - RENAL IMPAIRMENT [None]
  - CEREBROVASCULAR ACCIDENT [None]
  - RENAL FAILURE [None]
  - RENAL INJURY [None]
  - EMOTIONAL DISTRESS [None]
  - STRESS [None]
  - PAIN [None]
  - ANHEDONIA [None]
  - MULTI-ORGAN FAILURE [None]
  - UNEVALUABLE EVENT [None]
  - INJURY [None]
